FAERS Safety Report 16400597 (Version 1)
Quarter: 2019Q2

REPORT INFORMATION
  Report Type: Spontaneous
  Country: US (occurrence: US)
  Receive Date: 20190606
  Receipt Date: 20190606
  Transmission Date: 20190711
  Serious: Yes (Death, Other)
  Sender: FDA-Public Use
  Company Number: US-FRESENIUS KABI-FK201906327

PATIENT
  Age: 78 Year
  Sex: Male

DRUGS (2)
  1. METFORMIN [Suspect]
     Active Substance: METFORMIN HYDROCHLORIDE
     Indication: PRODUCT USED FOR UNKNOWN INDICATION
     Route: 065
  2. MORPHINE (MANUFACTURER UNKNOWN) [Suspect]
     Active Substance: MORPHINE
     Indication: PROCEDURAL PAIN
     Route: 065

REACTIONS (6)
  - Pulmonary embolism [Unknown]
  - Acute kidney injury [Unknown]
  - Sepsis [Fatal]
  - Urinary tract obstruction [Unknown]
  - Respiratory distress [Unknown]
  - Multiple organ dysfunction syndrome [Fatal]
